FAERS Safety Report 22339234 (Version 1)
Quarter: 2023Q2

REPORT INFORMATION
  Report Type: Spontaneous
  Country: JP (occurrence: JP)
  Receive Date: 20230518
  Receipt Date: 20230518
  Transmission Date: 20230721
  Serious: Yes (Disabling)
  Sender: FDA-Public Use
  Company Number: JP-ONO-2023JP006144

PATIENT
  Age: 69 Year
  Sex: Female

DRUGS (10)
  1. MEKTOVI [Suspect]
     Active Substance: BINIMETINIB
     Indication: Colon cancer
     Dosage: 45 MG, Q12H
     Route: 048
     Dates: start: 20230117
  2. MEKTOVI [Suspect]
     Active Substance: BINIMETINIB
     Dosage: 60 MG, EVERYDAY
     Route: 048
  3. MEKTOVI [Suspect]
     Active Substance: BINIMETINIB
     Dosage: 15 MG, Q12H
     Route: 048
  4. BRAFTOVI [Suspect]
     Active Substance: ENCORAFENIB
     Indication: Colon cancer
     Dosage: 300 MG
     Route: 048
     Dates: start: 20230117
  5. BRAFTOVI [Suspect]
     Active Substance: ENCORAFENIB
     Dosage: 225 MG
     Route: 048
  6. BRAFTOVI [Suspect]
     Active Substance: ENCORAFENIB
     Dosage: 150 MG
     Route: 048
  7. ERBITUX [Suspect]
     Active Substance: CETUXIMAB
     Indication: Colon cancer
     Dosage: 580 MG
     Route: 041
     Dates: start: 20230117
  8. ERBITUX [Suspect]
     Active Substance: CETUXIMAB
     Dosage: 350 MG
     Route: 041
  9. ERBITUX [Suspect]
     Active Substance: CETUXIMAB
     Dosage: 260 MG
     Route: 041
  10. ERBITUX [Suspect]
     Active Substance: CETUXIMAB
     Dosage: 200 MG
     Route: 041

REACTIONS (1)
  - Skin disorder [Recovering/Resolving]

NARRATIVE: CASE EVENT DATE: 20230118
